FAERS Safety Report 7127035-2 (Version None)
Quarter: 2010Q4

REPORT INFORMATION
  Report Type: 
  Country: None (occurrence: None)
  Receive Date: 20101129
  Receipt Date: 20100120
  Transmission Date: 20110411
  Serious: Yes (Other)
  Sender: FDA-Public Use
  Company Number: US-PFIZER INC-2010008246

PATIENT

DRUGS (3)
  1. VIAGRA [Suspect]
     Dosage: UNK
  2. AVODART [Suspect]
     Dosage: UNK
  3. TAMSULOSIN HYDROCHLORIDE [Suspect]
     Dosage: UNK

REACTIONS (1)
  - ANGINA PECTORIS [None]
